FAERS Safety Report 7300976-9 (Version None)
Quarter: 2011Q1

REPORT INFORMATION
  Report Type: 
  Country: None (occurrence: None)
  Receive Date: 20110110
  Receipt Date: 20101111
  Transmission Date: 20110831
  Serious: No
  Sender: FDA-Public Use
  Company Number: 2010IP000143

PATIENT
  Age: 45 Year
  Sex: Female

DRUGS (4)
  1. BEPREVE [Suspect]
     Indication: LACRIMATION INCREASED
     Dosage: 1 GTT; BID; OPH
     Route: 047
     Dates: start: 20101001
  2. ESTROGENS CONJUGATED W/PROGESTERONE [Concomitant]
  3. THYROID TAB [Concomitant]
  4. ARTIFICIAL TEARS [Concomitant]

REACTIONS (1)
  - PARAESTHESIA [None]
